FAERS Safety Report 10086267 (Version 1)
Quarter: 2014Q2

REPORT INFORMATION
  Report Type: Spontaneous
  Country: US (occurrence: US)
  Receive Date: 20140418
  Receipt Date: 20140418
  Transmission Date: 20141212
  Serious: No
  Sender: FDA-Public Use
  Company Number: US-ENDO PHARMACEUTICALS INC.-DIAZ20130007

PATIENT
  Age: 62 Year
  Sex: Male

DRUGS (2)
  1. DIAZEPAM 5MG [Suspect]
     Indication: PRODUCT USED FOR UNKNOWN INDICATION
     Route: 048
  2. SINGULAIR [Concomitant]
     Indication: ASTHMA
     Route: 048

REACTIONS (1)
  - Urethritis [Not Recovered/Not Resolved]
